FAERS Safety Report 4413950-7 (Version None)
Quarter: 2004Q3

REPORT INFORMATION
  Report Type: 
  Country: None (occurrence: None)
  Receive Date: 20040803
  Receipt Date: 20040628
  Transmission Date: 20050211
  Serious: Yes (Hospitalization, Other)
  Sender: FDA-Public Use
  Company Number: PHHO2004BE10036

PATIENT
  Age: 32 Year
  Sex: Male

DRUGS (10)
  1. GLEEVEC [Suspect]
     Indication: ACUTE LYMPHOCYTIC LEUKAEMIA
     Dosage: 200 MG, BID
     Route: 048
     Dates: start: 20040624, end: 20040627
  2. GLEEVEC [Suspect]
     Dosage: 300 MG, QD
     Route: 048
     Dates: start: 20040628, end: 20040628
  3. DIPIDOLOR [Concomitant]
  4. LITICUM [Concomitant]
  5. ASPARAGINASE [Concomitant]
  6. VINCRISTINE [Concomitant]
  7. FOLIC ACID [Concomitant]
  8. OMEPRAZOLE [Concomitant]
  9. DIFLUCAN [Concomitant]
  10. PENICILLIN G [Concomitant]
     Dosage: UNK, UNK

REACTIONS (4)
  - BLOOD CREATINE PHOSPHOKINASE INCREASED [None]
  - MYALGIA [None]
  - MYOGLOBIN BLOOD INCREASED [None]
  - RHABDOMYOLYSIS [None]
